FAERS Safety Report 12490057 (Version 1)
Quarter: 2016Q2

REPORT INFORMATION
  Report Type: Spontaneous
  Country: US (occurrence: US)
  Receive Date: 20160622
  Receipt Date: 20160622
  Transmission Date: 20160815
  Serious: No
  Sender: FDA-Public Use
  Company Number: US-PRESTIGE BRANDS -1054216

PATIENT
  Sex: Female

DRUGS (1)
  1. NIX [Suspect]
     Active Substance: PERMETHRIN
     Indication: LICE INFESTATION
     Route: 061
     Dates: start: 20160325

REACTIONS (1)
  - Alopecia [Not Recovered/Not Resolved]

NARRATIVE: CASE EVENT DATE: 20160325
